FAERS Safety Report 8273015-3 (Version None)
Quarter: 2012Q2

REPORT INFORMATION
  Report Type: 
  Country: None (occurrence: None)
  Receive Date: 20120409
  Receipt Date: 20120409
  Transmission Date: 20120825
  Serious: Yes (Hospitalization)
  Sender: FDA-Public Use
  Company Number: None

PATIENT
  Age: 60 Year
  Sex: Female
  Weight: 48 kg

DRUGS (11)
  1. ALBUTEROL (PROVENTIL OR VENTOLIN) [Concomitant]
  2. NEURONTIN [Concomitant]
  3. FLUTICASONE/SALMETEROL (ADVAIR DISKUS) [Concomitant]
  4. LASIX [Concomitant]
  5. WARFARIN SODIUM [Suspect]
     Indication: PULMONARY EMBOLISM
     Dosage: WARFARIN 4MG DAILY PO
     Route: 048
     Dates: start: 20120316
  6. WARFARIN SODIUM [Suspect]
     Indication: PULMONARY EMBOLISM
     Dosage: WARFARIN 4MG DAILY PO
     Route: 048
     Dates: start: 20120304
  7. LIDOCAINE (LIDODERM) [Concomitant]
  8. ALBUTEROL/IPRATROPIUM (COMBIVENT) [Concomitant]
  9. ASPIRIN [Concomitant]
  10. ALUMINUM + MAGNESIUM HYDROXIDE/SIMETHICONE (MAALOX REGULAR OR MYLANTA) [Concomitant]
  11. DILTIAZEM HCL (DILTIAZEM ER) [Concomitant]

REACTIONS (1)
  - INTERNATIONAL NORMALISED RATIO INCREASED [None]
